FAERS Safety Report 9158391 (Version 2)
Quarter: 2013Q2

REPORT INFORMATION
  Report Type: Spontaneous
  Country: US (occurrence: US)
  Receive Date: 20130312
  Receipt Date: 20130523
  Transmission Date: 20140414
  Serious: No
  Sender: FDA-Public Use
  Company Number: US-PFIZER INC-2013080138

PATIENT
  Age: 45 Year
  Sex: Female
  Weight: 58 kg

DRUGS (16)
  1. PREMARIN [Suspect]
     Indication: HORMONE REPLACEMENT THERAPY
     Dosage: 0.3 MG, DAILY
     Route: 048
     Dates: start: 20070214
  2. PREMARIN [Suspect]
     Indication: ARTIFICIAL MENOPAUSE
     Dosage: 0.625 MG, DAILY
     Dates: start: 20070228
  3. PREMARIN [Suspect]
     Dosage: 0.9 MG, DAILY
     Dates: start: 20070326
  4. PREMARIN [Suspect]
     Dosage: 0.45 MG, DAILY
     Dates: start: 20080829
  5. PREMARIN [Suspect]
     Dosage: 0.3 MG, DAILY
     Dates: start: 20091119
  6. PREMARIN [Suspect]
     Dosage: 0.45 MG, DAILY
     Dates: start: 20100108
  7. DIVALPROEX [Concomitant]
     Dosage: UNK
  8. PAROXETINE [Concomitant]
     Dosage: UNK
  9. DITROPAN [Concomitant]
     Dosage: UNK
  10. PRILOSEC [Concomitant]
     Dosage: UNK
  11. ADVAIR [Concomitant]
     Dosage: UNK
  12. COMBIVENT [Concomitant]
     Dosage: UNK
  13. CALCIUM [Concomitant]
     Dosage: UNK
  14. AMITRIPTYLINE [Concomitant]
     Dosage: UNK
  15. LORATADINE [Concomitant]
     Dosage: UNK
  16. ALBUTEROL [Concomitant]
     Dosage: UNK

REACTIONS (2)
  - Tooth disorder [Unknown]
  - Tooth discolouration [Unknown]
